FAERS Safety Report 5621988-7 (Version None)
Quarter: 2008Q1

REPORT INFORMATION
  Report Type: 
  Country: None (occurrence: None)
  Receive Date: 20080211
  Receipt Date: 20080129
  Transmission Date: 20080703
  Serious: Yes (Hospitalization)
  Sender: FDA-Public Use
  Company Number: BG-AMGEN-UK260028

PATIENT
  Sex: Male

DRUGS (3)
  1. PANITUMUMAB [Suspect]
     Indication: COLORECTAL CANCER
     Route: 041
     Dates: start: 20070822, end: 20071128
  2. CAMPTOSAR [Concomitant]
  3. FLUOROURACIL [Concomitant]

REACTIONS (1)
  - FEBRILE NEUTROPENIA [None]
